FAERS Safety Report 13928734 (Version 4)
Quarter: 2017Q3

REPORT INFORMATION
  Report Type: Spontaneous
  Country: NL (occurrence: NL)
  Receive Date: 20170901
  Receipt Date: 20170919
  Transmission Date: 20171127
  Serious: No
  Sender: FDA-Public Use
  Company Number: NL-CIPLA LTD.-2017NL15203

PATIENT

DRUGS (11)
  1. OLANZAPINE. [Interacting]
     Active Substance: OLANZAPINE
     Dosage: 40 MG, DAILY
     Route: 048
  2. RITONAVIR. [Suspect]
     Active Substance: RITONAVIR
     Indication: HIV INFECTION
     Dosage: 100 MG, QD
     Route: 048
  3. COLECALCIFEROL [Concomitant]
     Active Substance: CHOLECALCIFEROL
     Dosage: 400 IU, UNK
     Route: 048
  4. OLANZAPINE. [Interacting]
     Active Substance: OLANZAPINE
     Dosage: 80 MG, UNK
     Route: 048
  5. CALCIUM CARBONATE/COLECALCIFEROL [Concomitant]
     Active Substance: CALCIUM CARBONATE\CHOLECALCIFEROL
     Dosage: 500 MG / 440 IU,UNK
     Route: 048
  6. LORAZEPAM. [Concomitant]
     Active Substance: LORAZEPAM
     Dosage: 2.5 MG, UNK
     Route: 048
  7. ATAZANAVIR [Concomitant]
     Active Substance: ATAZANAVIR
     Indication: HIV INFECTION
     Dosage: 150 MG, UNK
     Route: 048
  8. MULTIVITAMIN PREPARATION [Concomitant]
     Dosage: 30 (UNSPECIFIED UNITS)
     Route: 048
  9. PANTOPRAZOLE [Concomitant]
     Active Substance: PANTOPRAZOLE
     Dosage: 20 MG, UNK
     Route: 048
  10. OLANZAPINE. [Interacting]
     Active Substance: OLANZAPINE
     Indication: SCHIZOPHRENIA
     Dosage: 15 MG, QD
     Route: 048
  11. LAMIVUDINE/ZIDOVUDINE [Concomitant]
     Active Substance: LAMIVUDINE\ZIDOVUDINE
     Indication: HIV INFECTION
     Dosage: 150 MG/300 MG, UNK
     Route: 048

REACTIONS (2)
  - Drug interaction [Unknown]
  - Drug resistance [Unknown]
